FAERS Safety Report 13187929 (Version 5)
Quarter: 2019Q1

REPORT INFORMATION
  Report Type: Spontaneous
  Country: US (occurrence: US)
  Receive Date: 20170206
  Receipt Date: 20190210
  Transmission Date: 20190417
  Serious: Yes (Congenital Anomaly, Other)
  Sender: FDA-Public Use
  Company Number: PHEH2017US003270

PATIENT
  Sex: Male

DRUGS (3)
  1. ZOFRAN [Suspect]
     Active Substance: ONDANSETRON HYDROCHLORIDE
     Indication: FOETAL EXPOSURE DURING PREGNANCY
     Route: 064
  2. ONDANSETRON HYDROCHLORIDE. [Suspect]
     Active Substance: ONDANSETRON HYDROCHLORIDE
     Indication: FOETAL EXPOSURE DURING PREGNANCY
     Dosage: MOTHER DOSE: 4MG, UNK
     Route: 064
  3. ONDANSETRON [Suspect]
     Active Substance: ONDANSETRON
     Indication: FOETAL EXPOSURE DURING PREGNANCY
     Dosage: MOTHER DOSE: 4MG, UNK
     Route: 064

REACTIONS (31)
  - Foetal exposure during pregnancy [Unknown]
  - Screaming [Unknown]
  - Rash [Unknown]
  - Pyrexia [Unknown]
  - Dermatitis [Unknown]
  - Pharyngitis [Unknown]
  - Ear pain [Unknown]
  - Atrial septal defect [Unknown]
  - Herpangina [Unknown]
  - Conjunctivitis [Unknown]
  - Anhedonia [Unknown]
  - Vomiting [Unknown]
  - Congenital anomaly [Unknown]
  - Pain [Unknown]
  - Anxiety [Unknown]
  - Otitis media acute [Unknown]
  - Failure to thrive [Unknown]
  - Rhinorrhoea [Unknown]
  - Cough [Unknown]
  - Teething [Unknown]
  - Cardiac murmur [Unknown]
  - Nasal congestion [Unknown]
  - Emotional distress [Unknown]
  - Speech disorder [Unknown]
  - Urine odour abnormal [Unknown]
  - Developmental hip dysplasia [Unknown]
  - Respiratory tract infection [Unknown]
  - Injury [Unknown]
  - Diarrhoea [Unknown]
  - Constipation [Unknown]
  - Weight gain poor [Unknown]
